FAERS Safety Report 10451685 (Version 1)
Quarter: 2014Q3

REPORT INFORMATION
  Report Type: Spontaneous
  Country: JP (occurrence: JP)
  Receive Date: 20140915
  Receipt Date: 20140915
  Transmission Date: 20150326
  Serious: Yes (Congenital Anomaly)
  Sender: FDA-Public Use
  Company Number: PHHY2014JP116274

PATIENT

DRUGS (1)
  1. THIAMAZOLE [Suspect]
     Active Substance: METHIMAZOLE
     Route: 064

REACTIONS (2)
  - Foetal exposure during pregnancy [Unknown]
  - Exomphalos [Unknown]
